FAERS Safety Report 12295945 (Version 2)
Quarter: 2016Q2

REPORT INFORMATION
  Report Type: Spontaneous
  Country: US (occurrence: US)
  Receive Date: 20160422
  Receipt Date: 20160427
  Transmission Date: 20160815
  Serious: No
  Sender: FDA-Public Use
  Company Number: US-MDT-ADR-2016-00729

PATIENT
  Sex: Male

DRUGS (1)
  1. LIORESAL [Suspect]
     Active Substance: BACLOFEN
     Dosage: 1025 MCG/DAY
     Route: 037

REACTIONS (3)
  - Hypotonia [Unknown]
  - No therapeutic response [Unknown]
  - Muscle spasticity [Unknown]
